FAERS Safety Report 5782187-1 (Version None)
Quarter: 2008Q2

REPORT INFORMATION
  Report Type: 
  Country: None (occurrence: None)
  Receive Date: 20080623
  Receipt Date: 20080613
  Transmission Date: 20081010
  Serious: Yes (Hospitalization)
  Sender: FDA-Public Use
  Company Number: US-SANOFI-SYNTHELABO-A03200801658

PATIENT
  Sex: Female
  Weight: 49.9 kg

DRUGS (14)
  1. MAGNESIUM [Concomitant]
     Indication: DRUG USE FOR UNKNOWN INDICATION
     Dosage: UNK
     Route: 065
  2. CALCIUM [Concomitant]
     Indication: DRUG USE FOR UNKNOWN INDICATION
     Dosage: UNK
     Route: 065
  3. HYDRALAZINE HCL [Concomitant]
     Indication: BLOOD PRESSURE
     Route: 048
  4. PLAVIX [Suspect]
     Indication: CEREBROVASCULAR ACCIDENT
     Route: 048
     Dates: end: 20080513
  5. PLAVIX [Suspect]
     Indication: ANTICOAGULANT THERAPY
     Route: 048
     Dates: end: 20080513
  6. PLAVIX [Suspect]
     Route: 048
  7. PLAVIX [Suspect]
     Route: 048
  8. FUROSEMIDE [Concomitant]
     Indication: DRUG USE FOR UNKNOWN INDICATION
     Route: 048
  9. FEXOFENADINE [Concomitant]
     Indication: HYPERSENSITIVITY
     Route: 048
  10. LOVASTATIN [Concomitant]
     Indication: BLOOD CHOLESTEROL DECREASED
     Route: 048
  11. LABETOLOL [Concomitant]
     Indication: BLOOD PRESSURE
     Route: 048
  12. KLOR-CON [Concomitant]
     Indication: DRUG USE FOR UNKNOWN INDICATION
     Route: 048
  13. HYDRALAZINE HCL [Concomitant]
     Route: 048
  14. AMLODIPINE [Concomitant]
     Indication: ANGINA PECTORIS
     Dosage: UNK
     Route: 048

REACTIONS (1)
  - BALANCE DISORDER [None]
